FAERS Safety Report 6468676-5 (Version None)
Quarter: 2009Q4

REPORT INFORMATION
  Report Type: 
  Country: None (occurrence: None)
  Receive Date: 20091203
  Receipt Date: 20091125
  Transmission Date: 20100525
  Serious: Yes (Other)
  Sender: FDA-Public Use
  Company Number: JP-ROCHE-610900

PATIENT
  Sex: Male
  Weight: 50 kg

DRUGS (9)
  1. CEFTRIAXONE SODIUM [Suspect]
     Indication: DRUG USE FOR UNKNOWN INDICATION
     Dosage: DRUG: SEFIROM; ROUTE: INTRAVENOUS (NOS)
     Route: 042
     Dates: start: 20081223, end: 20081229
  2. ERLOTINIB [Suspect]
     Indication: LUNG ADENOCARCINOMA
     Route: 048
     Dates: start: 20081008, end: 20081027
  3. ERLOTINIB [Suspect]
     Route: 048
     Dates: start: 20081113, end: 20081115
  4. ERLOTINIB [Suspect]
     Route: 048
     Dates: start: 20081120, end: 20081223
  5. CRAVIT [Suspect]
     Indication: DRUG USE FOR UNKNOWN INDICATION
     Dosage: DOSEFORM: ORAL FORMULATION (NOT OTHERWISE SPECIFIED)
     Route: 048
     Dates: start: 20081027, end: 20081108
  6. CLEANAL [Concomitant]
     Route: 048
  7. MUCOSOLVAN [Concomitant]
     Dosage: DOSEFORM: ORAL FORMULATION (NOT OTHERWISE SPECIFIED)
     Route: 048
  8. MEDICON [Concomitant]
     Dosage: DOSEFORM: ORAL FORMULATION (NOT OTHERWISE SPECIFIED)
     Route: 048
  9. URINORM [Concomitant]
     Route: 048

REACTIONS (4)
  - HEPATIC FUNCTION ABNORMAL [None]
  - INTERSTITIAL LUNG DISEASE [None]
  - PYREXIA [None]
  - XERODERMA [None]
